FAERS Safety Report 24396626 (Version 1)
Quarter: 2024Q4

REPORT INFORMATION
  Report Type: Other
  Country: CN (occurrence: CN)
  Receive Date: 20241004
  Receipt Date: 20241004
  Transmission Date: 20250115
  Serious: Yes (Death, Hospitalization)
  Sender: BIONPHARMA
  Company Number: CN-Bion-013962

PATIENT
  Age: 65 Year
  Sex: Male

DRUGS (4)
  1. AZITHROMYCIN [Suspect]
     Active Substance: AZITHROMYCIN
     Indication: Ureaplasma infection
  2. MINOCYCLINE [Concomitant]
     Active Substance: MINOCYCLINE HYDROCHLORIDE
     Indication: Ureaplasma infection
     Dosage: 100MG CAPSULE
  3. GANCICLOVIR [Concomitant]
     Active Substance: GANCICLOVIR
     Indication: Antiviral treatment
  4. MYCOPHENOLATE SODIUM [Concomitant]
     Active Substance: MYCOPHENOLATE SODIUM
     Indication: Prophylaxis against transplant rejection
     Dosage: DOSE OF ENTERIC-COATED CAPSULE WAS REDUCED TO HALF. INITIALLY IT WAS 720MG EVERY 12 HOURS

REACTIONS (1)
  - Drug ineffective [Fatal]
